FAERS Safety Report 6310383-3 (Version None)
Quarter: 2009Q3

REPORT INFORMATION
  Report Type: 
  Country: None (occurrence: None)
  Receive Date: 20090814
  Receipt Date: 20090729
  Transmission Date: 20100115
  Serious: Yes (Hospitalization)
  Sender: FDA-Public Use
  Company Number: PHHY2009KR31478

PATIENT

DRUGS (3)
  1. ACLASTA/ZOLEDRONATE T29581+A+ [Suspect]
     Indication: OSTEONECROSIS
     Dosage: 5MG ONCE YEARLY
     Route: 042
     Dates: start: 20090423
  2. CALCIUM [Concomitant]
  3. VITAMIN D [Concomitant]

REACTIONS (4)
  - DISEASE PROGRESSION [None]
  - DRUG INEFFECTIVE [None]
  - HIP ARTHROPLASTY [None]
  - OSTEONECROSIS [None]
